FAERS Safety Report 9245979 (Version 2)
Quarter: 2013Q2

REPORT INFORMATION
  Report Type: Spontaneous
  Country: US (occurrence: US)
  Receive Date: 20130422
  Receipt Date: 20130531
  Transmission Date: 20140414
  Serious: Yes (Other)
  Sender: FDA-Public Use
  Company Number: US-PFIZER INC-2013125384

PATIENT
  Age: 71 Year
  Sex: Female
  Weight: 70.75 kg

DRUGS (4)
  1. LYRICA [Suspect]
     Indication: BACK PAIN
     Dosage: 125 MG, 2X/DAY
     Dates: start: 2010
  2. PROLIA [Suspect]
     Indication: BONE DISORDER
     Dosage: UNK
  3. METOPROLOL TARTRATE [Concomitant]
     Indication: CARDIAC DISORDER
     Dosage: HALF OF 50 MG IN THE MORNING AND 50 MG AT NIGHT
  4. SIMVASTATIN [Concomitant]
     Indication: BLOOD CHOLESTEROL ABNORMAL
     Dosage: 40 MG, 1X/DAY

REACTIONS (5)
  - Breast cancer female [Unknown]
  - Tooth loss [Unknown]
  - Jaw disorder [Unknown]
  - Tooth disorder [Unknown]
  - Malaise [Unknown]
